FAERS Safety Report 7753062-8 (Version None)
Quarter: 2011Q3

REPORT INFORMATION
  Report Type: 
  Country: None (occurrence: None)
  Receive Date: 20110915
  Receipt Date: 20110908
  Transmission Date: 20111222
  Serious: Yes (Death, Hospitalization)
  Sender: FDA-Public Use
  Company Number: GB-TEVA-300449ISR

PATIENT
  Age: 64 Year
  Sex: Male
  Weight: 95 kg

DRUGS (1)
  1. PREDNISOLONE [Suspect]
     Indication: POLYMYALGIA RHEUMATICA
     Route: 048
     Dates: start: 20100819

REACTIONS (13)
  - PLEURAL EFFUSION [None]
  - SEPTIC SHOCK [None]
  - ABDOMINAL PAIN UPPER [None]
  - PNEUMOTHORAX [None]
  - OESOPHAGEAL PERFORATION [None]
  - HYPOXIA [None]
  - PYREXIA [None]
  - SEPSIS [None]
  - CARDIAC ARREST [None]
  - CLOSTRIDIUM DIFFICILE COLITIS [None]
  - ABDOMINAL DISTENSION [None]
  - MEDIASTINAL DISORDER [None]
  - PULMONARY EMBOLISM [None]
